FAERS Safety Report 9185994 (Version 2)
Quarter: 2013Q2

REPORT INFORMATION
  Report Type: Report from Study
  Country: NZ (occurrence: NZ)
  Receive Date: 20130325
  Receipt Date: 20130408
  Transmission Date: 20140414
  Serious: Yes (Other)
  Sender: FDA-Public Use
  Company Number: NZ-TEVA-391650ISR

PATIENT
  Age: 74 Year
  Sex: Male

DRUGS (5)
  1. COPAXONE [Suspect]
     Indication: MULTIPLE SCLEROSIS
     Route: 058
     Dates: start: 20130111
  2. SIMVASTATIN [Concomitant]
     Indication: BLOOD CHOLESTEROL INCREASED
  3. ASPIRIN [Concomitant]
  4. METOPROLOL SULPHATE [Concomitant]
     Indication: BLOOD PRESSURE INCREASED
  5. CILAZAPRIL [Concomitant]
     Indication: BLOOD PRESSURE INCREASED

REACTIONS (1)
  - Circulatory collapse [Recovered/Resolved]
